FAERS Safety Report 16395026 (Version 1)
Quarter: 2019Q2

REPORT INFORMATION
  Report Type: Spontaneous
  Country: CH (occurrence: CH)
  Receive Date: 20190605
  Receipt Date: 20190605
  Transmission Date: 20190711
  Serious: Yes (Other)
  Sender: FDA-Public Use
  Company Number: PHHY2019CH126064

PATIENT
  Age: 2 Year
  Sex: Female

DRUGS (1)
  1. CO-AMOXICILLIN [Suspect]
     Active Substance: AMOXICILLIN\CLAVULANATE POTASSIUM
     Indication: STREPTOCOCCAL INFECTION
     Dosage: UNK UKN, UNK
     Route: 065

REACTIONS (2)
  - Pseudomonas infection [Unknown]
  - Ecthyma [Unknown]
